FAERS Safety Report 5757644-4 (Version None)
Quarter: 2008Q2

REPORT INFORMATION
  Report Type: 
  Country: None (occurrence: None)
  Receive Date: 20080603
  Receipt Date: 20080520
  Transmission Date: 20081010
  Serious: Yes (Hospitalization, Other)
  Sender: FDA-Public Use
  Company Number: GB-BAUSCH-2008BL002237

PATIENT
  Age: 40 Year
  Sex: Male

DRUGS (2)
  1. PREDNISOLONE [Suspect]
     Indication: RENAL TRANSPLANT
     Dates: start: 19960801
  2. CYCLOSPORINE [Suspect]
     Indication: RENAL TRANSPLANT
     Dates: start: 19960801

REACTIONS (6)
  - DIFFUSE LARGE B-CELL LYMPHOMA STAGE I [None]
  - EPSTEIN-BARR VIRUS ANTIBODY POSITIVE [None]
  - HODGKIN'S DISEASE MIXED CELLULARITY STAGE UNSPECIFIED [None]
  - HYPERHIDROSIS [None]
  - LYMPHADENOPATHY [None]
  - RENAL IMPAIRMENT [None]
